FAERS Safety Report 13464807 (Version 3)
Quarter: 2018Q4

REPORT INFORMATION
  Report Type: Spontaneous
  Country: US (occurrence: US)
  Receive Date: 20170420
  Receipt Date: 20181011
  Transmission Date: 20190204
  Serious: No
  Sender: FDA-Public Use
  Company Number: US-ASTRAZENECA-2017SE40956

PATIENT
  Age: 30203 Day
  Sex: Female

DRUGS (2)
  1. TUDORZA PRESSAIR [Suspect]
     Active Substance: ACLIDINIUM BROMIDE
     Indication: CHRONIC OBSTRUCTIVE PULMONARY DISEASE
     Route: 055
  2. TUDORZA PRESSAIR [Suspect]
     Active Substance: ACLIDINIUM BROMIDE
     Indication: EMPHYSEMA
     Route: 055

REACTIONS (5)
  - Visual acuity reduced [Unknown]
  - Intentional product misuse [Recovered/Resolved]
  - Device issue [Unknown]
  - Circumstance or information capable of leading to medication error [Unknown]
  - Memory impairment [Unknown]

NARRATIVE: CASE EVENT DATE: 20170412
